FAERS Safety Report 6075941-2 (Version None)
Quarter: 2009Q1

REPORT INFORMATION
  Report Type: 
  Country: None (occurrence: None)
  Receive Date: 20090212
  Receipt Date: 20090202
  Transmission Date: 20090719
  Serious: Yes (Other)
  Sender: FDA-Public Use
  Company Number: US-PFIZER INC-2009164690

PATIENT
  Sex: Male
  Weight: 136 kg

DRUGS (3)
  1. CHANTIX [Suspect]
     Indication: SMOKING CESSATION THERAPY
     Dosage: UNK
     Dates: start: 20080801, end: 20080801
  2. ABILIFY [Concomitant]
     Dosage: UNK
  3. LITHIUM CARBONATE [Concomitant]
     Dosage: UNK

REACTIONS (2)
  - AGGRESSION [None]
  - PHYSICAL ASSAULT [None]
